FAERS Safety Report 4560141-5 (Version None)
Quarter: 2005Q1

REPORT INFORMATION
  Report Type: 
  Country: None (occurrence: None)
  Receive Date: 20050119
  Receipt Date: 20050107
  Transmission Date: 20050727
  Serious: Yes (Hospitalization)
  Sender: FDA-Public Use
  Company Number: 2005-BP-00220NB

PATIENT
  Age: 63 Year
  Sex: Male

DRUGS (5)
  1. BI-SIFROL               (PRAMIPEXOLE DIHYDROCHLORIDE) [Suspect]
     Indication: PARKINSONISM
     Dosage: 0.25 MG (NR) PO
     Route: 048
     Dates: start: 20050104, end: 20050106
  2. SINEMET [Concomitant]
  3. NAUZELIN            (DOMPERIDONE) [Concomitant]
  4. TANATRIL        B(IMIDAPRIL HYDROCHLORIDE) [Concomitant]
  5. ADALAT [Concomitant]

REACTIONS (1)
  - DEPRESSED LEVEL OF CONSCIOUSNESS [None]
